FAERS Safety Report 12092840 (Version 1)
Quarter: 2016Q1

REPORT INFORMATION
  Report Type: Spontaneous
  Country: VE (occurrence: VE)
  Receive Date: 20160219
  Receipt Date: 20160219
  Transmission Date: 20160526
  Serious: Yes (Other)
  Sender: FDA-Public Use
  Company Number: PHHY2016VE021755

PATIENT
  Age: 50 Year
  Sex: Female

DRUGS (4)
  1. FORADIL [Suspect]
     Active Substance: FORMOTEROL FUMARATE
     Indication: VIRAL INFECTION
  2. MIFLONIDE [Suspect]
     Active Substance: BUDESONIDE
     Indication: VIRAL INFECTION
  3. FORADIL [Suspect]
     Active Substance: FORMOTEROL FUMARATE
     Indication: CHRONIC OBSTRUCTIVE PULMONARY DISEASE
     Dosage: 400 UG, QD
     Route: 055
     Dates: start: 201511
  4. MIFLONIDE [Suspect]
     Active Substance: BUDESONIDE
     Indication: CHRONIC OBSTRUCTIVE PULMONARY DISEASE
     Dosage: 24 UG, QD
     Route: 055
     Dates: start: 201511

REACTIONS (7)
  - Bronchial obstruction [Unknown]
  - Dyspnoea [Unknown]
  - Asphyxia [Unknown]
  - Cough [Unknown]
  - Product use issue [Unknown]
  - Productive cough [Unknown]
  - Hypersensitivity [Unknown]

NARRATIVE: CASE EVENT DATE: 201512
